FAERS Safety Report 23080897 (Version 2)
Quarter: 2023Q4

REPORT INFORMATION
  Report Type: Spontaneous
  Country: BR (occurrence: BR)
  Receive Date: 20231018
  Receipt Date: 20231020
  Transmission Date: 20240110
  Serious: Yes (Death)
  Sender: FDA-Public Use
  Company Number: BR-SERVIER-S23011751

PATIENT
  Age: 83 Year
  Sex: Male
  Weight: 75.2 kg

DRUGS (2)
  1. LONSURF [Suspect]
     Active Substance: TIPIRACIL HYDROCHLORIDE\TRIFLURIDINE
     Indication: Colon cancer metastatic
     Dosage: 60 MG, EVERY 12H, ON DAYS 15-19 AND 22-26 OF EACH CYCLE.
     Route: 048
     Dates: start: 20230519
  2. AVASTIN [Concomitant]
     Active Substance: BEVACIZUMAB
     Indication: Colon cancer metastatic
     Dosage: 5 MG/KG, EVERY 28 DAYS
     Route: 065

REACTIONS (3)
  - Colon cancer metastatic [Fatal]
  - Neutrophil count decreased [Recovered/Resolved]
  - Product use issue [Recovered/Resolved]

NARRATIVE: CASE EVENT DATE: 20230710
